FAERS Safety Report 10177157 (Version 2)
Quarter: 2014Q2

REPORT INFORMATION
  Report Type: Spontaneous
  Country: US (occurrence: US)
  Receive Date: 20140516
  Receipt Date: 20140516
  Transmission Date: 20141212
  Serious: Yes (Hospitalization, Other)
  Sender: FDA-Public Use
  Company Number: US-US-EMD SERONO, INC.-230124M07USA

PATIENT
  Age: 50 Year
  Sex: Female

DRUGS (4)
  1. REBIF [Suspect]
     Indication: MULTIPLE SCLEROSIS
     Route: 058
     Dates: start: 20041123, end: 200705
  2. CARDIZEM [Concomitant]
     Indication: HYPERTENSION
  3. HYDROCHLOROTHIAZIDE [Concomitant]
     Indication: HYPERTENSION
  4. ASA [Concomitant]
     Indication: HYPERTENSION

REACTIONS (4)
  - Myelodysplastic syndrome [Recovered/Resolved]
  - Leukaemia [Recovered/Resolved]
  - Sinusitis [Unknown]
  - Pyrexia [Not Recovered/Not Resolved]
